FAERS Safety Report 6454076-0 (Version None)
Quarter: 2009Q4

REPORT INFORMATION
  Report Type: 
  Country: None (occurrence: None)
  Receive Date: 20091124
  Receipt Date: 20091116
  Transmission Date: 20100525
  Serious: Yes (Life-Threatening)
  Sender: FDA-Public Use
  Company Number: B0606323A

PATIENT
  Sex: Female

DRUGS (5)
  1. SERETIDE [Suspect]
     Indication: ASTHMA
     Dosage: 250MCG TWICE PER DAY
     Route: 055
     Dates: start: 20080714
  2. SEVEN E-P [Concomitant]
     Route: 048
  3. DOGMATYL [Concomitant]
     Route: 048
  4. CLEANAL [Concomitant]
     Route: 048
  5. PAXIL [Concomitant]
     Route: 048

REACTIONS (1)
  - UTERINE CANCER [None]
